FAERS Safety Report 4510466-4 (Version None)
Quarter: 2004Q4

REPORT INFORMATION
  Report Type: 
  Country: None (occurrence: None)
  Receive Date: 20041124
  Receipt Date: 20041112
  Transmission Date: 20050328
  Serious: Yes (Hospitalization)
  Sender: FDA-Public Use
  Company Number: FR-GLAXOSMITHKLINE-B0357014A

PATIENT
  Age: 67 Year
  Sex: Male

DRUGS (4)
  1. ZOPHREN [Suspect]
     Indication: PROPHYLAXIS
     Route: 042
     Dates: start: 20040715, end: 20040720
  2. CYCLOPHOSPHAMIDE [Suspect]
     Indication: CHRONIC LYMPHOCYTIC LEUKAEMIA
     Route: 042
     Dates: start: 20040715, end: 20040720
  3. FLUDARA [Suspect]
     Indication: CHRONIC LYMPHOCYTIC LEUKAEMIA
     Route: 042
     Dates: start: 20040715, end: 20040720
  4. PRIMPERAN [Suspect]
     Indication: PROPHYLAXIS
     Route: 048
     Dates: start: 20040720, end: 20040804

REACTIONS (3)
  - DERMATITIS BULLOUS [None]
  - ERYTHEMA MULTIFORME [None]
  - SELF-MEDICATION [None]
